FAERS Safety Report 6398126-9 (Version None)
Quarter: 2009Q4

REPORT INFORMATION
  Report Type: 
  Country: None (occurrence: None)
  Receive Date: 20091013
  Receipt Date: 20091005
  Transmission Date: 20100525
  Serious: Yes (Other)
  Sender: FDA-Public Use
  Company Number: US-AMGEN-STX367376

PATIENT
  Sex: Male

DRUGS (7)
  1. VECTIBIX [Suspect]
     Indication: COLORECTAL CANCER
     Dates: start: 20091002
  2. TYLENOL (CAPLET) [Concomitant]
  3. TETRACYCLINE [Concomitant]
  4. UNSPECIFIED MEDICATION [Concomitant]
  5. VITAMINS [Concomitant]
  6. MAGNESIUM [Concomitant]
  7. VITAMIN B6 [Concomitant]

REACTIONS (2)
  - LIVER FUNCTION TEST ABNORMAL [None]
  - NASOPHARYNGITIS [None]
